FAERS Safety Report 20963602 (Version 6)
Quarter: 2025Q2

REPORT INFORMATION
  Report Type: Spontaneous
  Country: US (occurrence: US)
  Receive Date: 20220615
  Receipt Date: 20250605
  Transmission Date: 20250717
  Serious: Yes (Hospitalization, Other)
  Sender: PFIZER
  Company Number: US-PFIZER INC-202200456297

PATIENT
  Age: 80 Year
  Sex: Male
  Weight: 99.787 kg

DRUGS (15)
  1. VYNDAMAX [Suspect]
     Active Substance: TAFAMIDIS
     Indication: Cardiac amyloidosis
     Dosage: 61 MG, 1X/DAY (IN THE MORNING)
     Dates: start: 202202
  2. VYNDAMAX [Suspect]
     Active Substance: TAFAMIDIS
     Indication: Cardiac disorder
     Dosage: 61MG 1 CAPSULE ONCE A DAY BY MOUTH
     Route: 048
  3. VYNDAMAX [Suspect]
     Active Substance: TAFAMIDIS
     Indication: Acquired ATTR amyloidosis
  4. CITALOPRAM [Concomitant]
     Active Substance: CITALOPRAM
     Dosage: 20 MG, 1X/DAY
  5. ALLOPURINOL [Concomitant]
     Active Substance: ALLOPURINOL
     Dosage: 300 MG, 1X/DAY
  6. JARDIANCE [Concomitant]
     Active Substance: EMPAGLIFLOZIN
     Indication: Diabetes mellitus
     Dosage: 10 MG, 1X/DAY
  7. TAMSULOSIN [Concomitant]
     Active Substance: TAMSULOSIN
     Indication: Diabetes mellitus
     Dosage: 4 MG, 1X/DAY
  8. ASPIRIN [Concomitant]
     Active Substance: ASPIRIN
     Indication: Cardiac disorder
     Dosage: 325 MG, 1X/DAY
     Route: 048
  9. LEVOTHYROXINE [Concomitant]
     Active Substance: LEVOTHYROXINE
     Indication: Thyroid disorder
     Dosage: 75 UG, 1X/DAY
  10. LOSARTAN [Concomitant]
     Active Substance: LOSARTAN
     Dosage: 50MG ONCE A DAY AT NIGHT
  11. GABAPENTIN [Concomitant]
     Active Substance: GABAPENTIN
     Indication: Neuralgia
     Dosage: 100MG 1 CAPSULE BY MOUTH IN THE AM AND 2 AT NIGHT
     Route: 048
  12. METOPROLOL [Concomitant]
     Active Substance: METOPROLOL
     Dosage: 25 MG, 1X/DAY
  13. OMEPRAZOLE [Concomitant]
     Active Substance: OMEPRAZOLE
     Dosage: 40 MG, 1X/DAY
  14. GLIMEPIRIDE [Concomitant]
     Active Substance: GLIMEPIRIDE
     Dosage: 2MG 2 TABLETS BY MOUTH TWICE A DAY WITH MEALS
     Route: 048
  15. FUROSEMIDE [Concomitant]
     Active Substance: FUROSEMIDE
     Indication: Diabetes mellitus
     Dosage: 1 DF, 1X/DAY

REACTIONS (6)
  - Urinary tract infection [Unknown]
  - Heart rate decreased [Unknown]
  - Pyrexia [Unknown]
  - Myocardial infarction [Recovered/Resolved with Sequelae]
  - Chest pain [Not Recovered/Not Resolved]
  - Pain [Unknown]

NARRATIVE: CASE EVENT DATE: 20240211
